FAERS Safety Report 22387241 (Version 3)
Quarter: 2023Q2

REPORT INFORMATION
  Report Type: Spontaneous
  Country: RU (occurrence: None)
  Receive Date: 20230531
  Receipt Date: 20230621
  Transmission Date: 20230722
  Serious: Yes (Other)
  Sender: FDA-Public Use
  Company Number: RU-ROCHE-3356890

PATIENT
  Age: 5 Year

DRUGS (1)
  1. EVRYSDI [Suspect]
     Active Substance: RISDIPLAM
     Indication: Spinal muscular atrophy
     Route: 065

REACTIONS (5)
  - Cardiac arrest [Unknown]
  - Hypoxia [Unknown]
  - Brain injury [Unknown]
  - Disturbance in attention [Unknown]
  - Speech disorder [Unknown]
